FAERS Safety Report 9322911 (Version 1)
Quarter: 2013Q2

REPORT INFORMATION
  Report Type: Spontaneous
  Country: IT (occurrence: IT)
  Receive Date: 20130602
  Receipt Date: 20130602
  Transmission Date: 20140414
  Serious: Yes (Hospitalization)
  Sender: FDA-Public Use
  Company Number: PHHY2013IT054727

PATIENT
  Sex: Male

DRUGS (4)
  1. TOLEP [Suspect]
     Indication: IDIOPATHIC GENERALISED EPILEPSY
     Dosage: 1 DF, DAILY
     Route: 048
     Dates: start: 20120904
  2. ABILIFY [Suspect]
     Indication: BIPOLAR DISORDER
     Dosage: 1 DF, DAILY
     Route: 048
     Dates: start: 20120904
  3. HUMALOG [Concomitant]
  4. LANTUS [Concomitant]

REACTIONS (3)
  - Depressed level of consciousness [Unknown]
  - Sopor [Unknown]
  - Intentional drug misuse [Unknown]
